FAERS Safety Report 24943627 (Version 2)
Quarter: 2025Q1

REPORT INFORMATION
  Report Type: Spontaneous
  Country: US (occurrence: US)
  Receive Date: 20250207
  Receipt Date: 20250317
  Transmission Date: 20250409
  Serious: No
  Sender: LUNDBECK
  Company Number: US-LUNDBECK-DKLU4009958

PATIENT
  Age: 33 Year
  Sex: Female

DRUGS (1)
  1. VYEPTI [Suspect]
     Active Substance: EPTINEZUMAB-JJMR
     Indication: Migraine
     Dosage: 300 MILLIGRAM
     Route: 041
     Dates: start: 20241018

REACTIONS (2)
  - Drug ineffective [Not Recovered/Not Resolved]
  - Migraine [Unknown]
